FAERS Safety Report 10512509 (Version 4)
Quarter: 2015Q4

REPORT INFORMATION
  Report Type: Report from Study
  Country: JP (occurrence: JP)
  Receive Date: 20141011
  Receipt Date: 20151211
  Transmission Date: 20160304
  Serious: Yes (Other)
  Sender: FDA-Public Use
  Company Number: JP-009507513-1309JPN005022

PATIENT
  Age: 8 Year
  Sex: Male

DRUGS (13)
  1. DIAZOXIDE [Suspect]
     Active Substance: DIAZOXIDE
     Indication: HYPOGLYCAEMIA
     Dosage: 145 MG, QD
     Route: 048
     Dates: end: 20061025
  2. DIAZOXIDE [Suspect]
     Active Substance: DIAZOXIDE
     Dosage: 80 MG, TID
     Route: 048
     Dates: start: 20120604, end: 20131224
  3. DIAZOXIDE [Suspect]
     Active Substance: DIAZOXIDE
     Dosage: 60 MG, TID
     Route: 048
     Dates: start: 20081101, end: 20090812
  4. DIAZOXIDE [Suspect]
     Active Substance: DIAZOXIDE
     Dosage: 150 MG, QD
     Route: 048
     Dates: start: 20061026, end: 20070518
  5. DIAZOXIDE [Suspect]
     Active Substance: DIAZOXIDE
     Dosage: 170 MG, QD
     Route: 048
     Dates: start: 20071027, end: 20071120
  6. DIAZOXIDE [Suspect]
     Active Substance: DIAZOXIDE
     Dosage: 110 MG, BID
     Route: 048
     Dates: start: 20140726
  7. DIAZOXIDE [Suspect]
     Active Substance: DIAZOXIDE
     Dosage: 160 MG, QD
     Route: 048
     Dates: start: 20070519, end: 20071026
  8. DIAZOXIDE [Suspect]
     Active Substance: DIAZOXIDE
     Dosage: 115 MG, BID
     Route: 048
     Dates: start: 20131225, end: 20140725
  9. DIAZOXIDE [Suspect]
     Active Substance: DIAZOXIDE
     Dosage: 180 MG, QD
     Route: 048
     Dates: start: 20071201, end: 20081024
  10. DIAZOXIDE [Suspect]
     Active Substance: DIAZOXIDE
     Dosage: 66.7 MG, TID
     Route: 048
     Dates: start: 20090813, end: 20100305
  11. DIAZOXIDE [Suspect]
     Active Substance: DIAZOXIDE
     Dosage: 75 MG, TID
     Route: 048
     Dates: start: 20100306, end: 20111224
  12. DIAZOXIDE [Suspect]
     Active Substance: DIAZOXIDE
     Dosage: 76.6 MG, TID
     Route: 048
     Dates: start: 20111225, end: 20120603
  13. THYRADIN-S [Concomitant]
     Active Substance: LEVOTHYROXINE
     Indication: HYPOTHYROIDISM
     Dosage: 15 MICROGRAM, QD, FORMULATION: POR
     Route: 048
     Dates: end: 20131225

REACTIONS (3)
  - Epilepsy [Recovered/Resolved]
  - Epilepsy [Not Recovered/Not Resolved]
  - Hypertrichosis [Recovering/Resolving]

NARRATIVE: CASE EVENT DATE: 20120303
